FAERS Safety Report 7964860-X (Version None)
Quarter: 2011Q4

REPORT INFORMATION
  Report Type: 
  Country: None (occurrence: None)
  Receive Date: 20111208
  Receipt Date: 20111206
  Transmission Date: 20120403
  Serious: Yes (Death, Hospitalization)
  Sender: FDA-Public Use
  Company Number: PHHO2011US14836

PATIENT
  Sex: Female
  Weight: 61.224 kg

DRUGS (14)
  1. AFINITOR [Suspect]
     Indication: MENINGIOMA
     Dosage: 10 MG, UNK
     Route: 048
     Dates: start: 20110804, end: 20110820
  2. CYMBALTA [Concomitant]
     Dosage: 60 MG, QD
     Dates: start: 20070101
  3. NYSTATIN [Concomitant]
     Indication: CANDIDIASIS
     Dosage: 10 ML, QD 5*QD
     Route: 048
     Dates: start: 20110401
  4. AVASTIN [Suspect]
     Indication: MENINGIOMA
     Dosage: 614 MG, UNK
     Route: 042
     Dates: start: 20110804, end: 20110818
  5. FOLIC ACID [Concomitant]
     Indication: PROPHYLAXIS
     Dosage: 1 MG, QD
     Route: 048
     Dates: start: 20110201
  6. GABAPENTIN [Concomitant]
     Dosage: 300 MG, TID
     Route: 048
     Dates: start: 20080101
  7. TRAZODONE HCL [Concomitant]
     Dosage: 100 MG, QD
     Route: 048
     Dates: start: 20110201
  8. FENTANYL-100 [Concomitant]
     Indication: PAIN
     Dosage: 25 UG, UNK
     Route: 061
     Dates: start: 20110601
  9. PERCOCET [Concomitant]
     Indication: BREAKTHROUGH PAIN
     Dosage: 5M/325G
     Route: 048
     Dates: start: 20080601, end: 20110818
  10. CYMBALTA [Concomitant]
     Indication: DEPRESSION
     Dosage: 90 MG, QD
     Route: 048
     Dates: start: 20070101
  11. GABAPENTIN [Concomitant]
     Dosage: 300 MG, QD
     Route: 048
     Dates: start: 20080101
  12. DEXAMETHASONE [Concomitant]
     Dosage: 2 MG, BID
     Route: 048
     Dates: start: 20110401
  13. LORAZEPAM [Concomitant]
     Dosage: 5 MG, QD
     Route: 048
     Dates: start: 20110201
  14. OMNICEF [Concomitant]
     Dosage: 300 MG, UNK
     Route: 048
     Dates: start: 20110803, end: 20110817

REACTIONS (6)
  - CEREBRAL HAEMORRHAGE [None]
  - MENTAL STATUS CHANGES [None]
  - ATAXIA [None]
  - URINARY TRACT INFECTION [None]
  - RIB FRACTURE [None]
  - CONCOMITANT DISEASE PROGRESSION [None]
